FAERS Safety Report 20392258 (Version 5)
Quarter: 2022Q3

REPORT INFORMATION
  Report Type: Spontaneous
  Country: JP (occurrence: JP)
  Receive Date: 20220128
  Receipt Date: 20220714
  Transmission Date: 20221027
  Serious: Yes (Other)
  Sender: FDA-Public Use
  Company Number: JP-GSKNCCC-Case-01403605_AE-54069

PATIENT

DRUGS (3)
  1. SOTROVIMAB [Suspect]
     Active Substance: SOTROVIMAB
     Dosage: 10 ML, 500 MG/100 ML/30 MIN
     Dates: start: 20220121, end: 20220121
  2. UNASYN (SULTAMICILLIN TOSILATE) [Concomitant]
     Indication: Bronchioloalveolar carcinoma
     Dosage: UNK
  3. UNASYN (SULTAMICILLIN TOSILATE) [Concomitant]
     Indication: Pneumonia

REACTIONS (3)
  - Unresponsive to stimuli [Unknown]
  - Depressed level of consciousness [Recovered/Resolved]
  - Blood pressure decreased [Unknown]

NARRATIVE: CASE EVENT DATE: 20220121
